FAERS Safety Report 21335188 (Version 2)
Quarter: 2022Q3

REPORT INFORMATION
  Report Type: Report from Study
  Country: BR (occurrence: BR)
  Receive Date: 20220915
  Receipt Date: 20220921
  Transmission Date: 20221027
  Serious: Yes (Hospitalization)
  Sender: FDA-Public Use
  Company Number: BR-BIOGEN-2022BI01154726

PATIENT
  Age: 33 Year
  Sex: Male
  Weight: 83 kg

DRUGS (6)
  1. TYSABRI [Suspect]
     Active Substance: NATALIZUMAB
     Indication: Multiple sclerosis
     Route: 050
     Dates: start: 2015
  2. VITAMIN D [Concomitant]
     Active Substance: VITAMIN D NOS
     Indication: Supplementation therapy
     Route: 050
     Dates: start: 2015
  3. DICYCLOMINE [Concomitant]
     Active Substance: DICYCLOMINE HYDROCHLORIDE
     Indication: Supplementation therapy
     Route: 050
     Dates: start: 2015
  4. vitamin A + zinc [Concomitant]
     Indication: Supplementation therapy
     Route: 050
     Dates: start: 2015
  5. PROPOLIS WAX [Concomitant]
     Active Substance: PROPOLIS WAX
     Indication: Supplementation therapy
     Route: 050
     Dates: start: 2015
  6. CANNABIS SATIVA SEED OIL\HERBALS [Concomitant]
     Active Substance: CANNABIS SATIVA SEED OIL\HERBALS
     Indication: Product used for unknown indication
     Route: 050
     Dates: start: 2018

REACTIONS (2)
  - Dengue fever [Recovered/Resolved]
  - Pneumonia [Recovered/Resolved]

NARRATIVE: CASE EVENT DATE: 20190901
